FAERS Safety Report 7207055-X (Version None)
Quarter: 2011Q1

REPORT INFORMATION
  Report Type: 
  Country: None (occurrence: None)
  Receive Date: 20110103
  Receipt Date: 20101228
  Transmission Date: 20110831
  Serious: Yes (Other)
  Sender: FDA-Public Use
  Company Number: B0691120A

PATIENT
  Age: 75 Year
  Sex: Male

DRUGS (6)
  1. ZYPREXA [Suspect]
     Route: 048
     Dates: start: 20070101
  2. NORSET [Suspect]
     Route: 048
  3. SECTRAL [Suspect]
     Dosage: 200MG PER DAY
     Route: 048
  4. VENLAFAXINE [Suspect]
     Route: 048
  5. LAMICTAL [Suspect]
     Dosage: 100MG THREE TIMES PER DAY
     Route: 048
  6. IMOVANE [Suspect]
     Route: 048

REACTIONS (2)
  - DYSPHAGIA [None]
  - ASPIRATION [None]
